FAERS Safety Report 18646488 (Version 1)
Quarter: 2020Q4

REPORT INFORMATION
  Report Type: Other
  Country: US (occurrence: US)
  Receive Date: 20201221
  Receipt Date: 20201221
  Transmission Date: 20210114
  Serious: No
  Sender: FDA-Public Use
  Company Number: US-ACORDA-ACO_166518_2020

PATIENT
  Age: 76 Year
  Sex: Female

DRUGS (4)
  1. INBRIJA [Suspect]
     Active Substance: LEVODOPA
     Indication: PARKINSON^S DISEASE
     Dosage: 84 MILLIGRAM, PRN, NOT TO EXCEED 5 DOSES PER DAY
     Dates: start: 20200810
  2. INBRIJA [Suspect]
     Active Substance: LEVODOPA
     Indication: ON AND OFF PHENOMENON
  3. CARBIDOPA AND LEVODOPA [Concomitant]
     Active Substance: CARBIDOPA\LEVODOPA
     Indication: PRODUCT USED FOR UNKNOWN INDICATION
     Dosage: 1 1/2 TABS QID (WAKES UP, 3 HOURS LATER, 12 NOON, 10 PM) / 25MG/100MG THREE TABLETS TID
     Route: 065
  4. AZILECT [Concomitant]
     Active Substance: RASAGILINE MESYLATE
     Indication: PRODUCT USED FOR UNKNOWN INDICATION
     Dosage: UNK, QD
     Route: 065

REACTIONS (14)
  - Condition aggravated [Unknown]
  - Device use issue [Unknown]
  - Product packaging issue [Unknown]
  - Therapy interrupted [Unknown]
  - Drug ineffective [Unknown]
  - Product physical issue [Unknown]
  - Dyspepsia [Unknown]
  - Restless legs syndrome [Unknown]
  - Oropharyngeal pain [Unknown]
  - Ill-defined disorder [Unknown]
  - Cough [Unknown]
  - Product appearance confusion [Unknown]
  - Gastrooesophageal reflux disease [Unknown]
  - Dizziness [Unknown]

NARRATIVE: CASE EVENT DATE: 20201012
